FAERS Safety Report 18933548 (Version 1)
Quarter: 2021Q1

REPORT INFORMATION
  Report Type: Report from Study
  Country: AU (occurrence: AU)
  Receive Date: 20210224
  Receipt Date: 20210224
  Transmission Date: 20210420
  Serious: No
  Sender: FDA-Public Use
  Company Number: AU-TOLMAR, INC.-2018AU001712

PATIENT

DRUGS (1)
  1. ELIGARD [Suspect]
     Active Substance: LEUPROLIDE ACETATE
     Indication: PROSTATE CANCER
     Dosage: 7.5 MG, MONTHLY
     Route: 058
     Dates: start: 20180115

REACTIONS (5)
  - Emotional distress [Unknown]
  - Affect lability [Unknown]
  - General physical health deterioration [Unknown]
  - Loss of libido [Unknown]
  - Fatigue [Not Recovered/Not Resolved]
